FAERS Safety Report 16541815 (Version 2)
Quarter: 2020Q2

REPORT INFORMATION
  Report Type: Report from Study
  Country: CA (occurrence: CA)
  Receive Date: 20190708
  Receipt Date: 20200604
  Transmission Date: 20200713
  Serious: Yes (Other)
  Sender: FDA-Public Use
  Company Number: PHHY2017CA151323

PATIENT
  Age: 70 Year
  Sex: Female

DRUGS (1)
  1. SANDOSTATIN LAR DEPOT [Suspect]
     Active Substance: OCTREOTIDE ACETATE
     Indication: CARCINOID TUMOUR
     Dosage: 300 MG, QMO (EVERY FOUR WEEKS)
     Route: 030
     Dates: start: 20170915

REACTIONS (12)
  - Pain in extremity [Unknown]
  - Weight decreased [Unknown]
  - Injection site pain [Unknown]
  - Blood pressure increased [Unknown]
  - Muscle spasms [Recovering/Resolving]
  - Abdominal discomfort [Recovering/Resolving]
  - Fatigue [Unknown]
  - Asthenia [Unknown]
  - Diarrhoea [Recovering/Resolving]
  - Blood pressure diastolic decreased [Unknown]
  - Decreased appetite [Unknown]
  - Needle issue [Unknown]

NARRATIVE: CASE EVENT DATE: 20171122
